FAERS Safety Report 8261020-2 (Version None)
Quarter: 2012Q2

REPORT INFORMATION
  Report Type: 
  Country: None (occurrence: None)
  Receive Date: 20120405
  Receipt Date: 20120403
  Transmission Date: 20120825
  Serious: No
  Sender: FDA-Public Use
  Company Number: US-PFIZER INC-2012084519

PATIENT
  Sex: Female
  Weight: 86.168 kg

DRUGS (5)
  1. ABILIFY [Concomitant]
     Dosage: 5 MG, UNK
  2. CHANTIX [Interacting]
     Dosage: 0.5 MG, 1X/DAY
     Route: 048
     Dates: start: 20120301
  3. WELLBUTRIN XL [Concomitant]
     Dosage: UNK
  4. CYMBALTA [Interacting]
     Indication: DEPRESSION
     Dosage: 120 MG, 1X/DAY
     Route: 048
     Dates: start: 20080101
  5. CHANTIX [Suspect]
     Indication: SMOKING CESSATION THERAPY
     Dosage: 0.5 MG, 1X/DAY
     Route: 048
     Dates: start: 20101019, end: 20110101

REACTIONS (2)
  - DRUG INTERACTION [None]
  - DRUG INEFFECTIVE [None]
